FAERS Safety Report 23414380 (Version 1)
Quarter: 2024Q1

REPORT INFORMATION
  Report Type: Spontaneous
  Country: US (occurrence: US)
  Receive Date: 20240118
  Receipt Date: 20240118
  Transmission Date: 20240410
  Serious: No
  Sender: FDA-Public Use
  Company Number: US-JNJFOC-20240119359

PATIENT
  Sex: Female

DRUGS (1)
  1. MOTRIN [Suspect]
     Active Substance: IBUPROFEN
     Indication: Product used for unknown indication
     Dosage: 600 MG 3 TIMES A DAY AND 200MG EXTRA
     Route: 065

REACTIONS (3)
  - Extra dose administered [Unknown]
  - Off label use [Unknown]
  - Prescribed overdose [Unknown]
